FAERS Safety Report 6645731-8 (Version None)
Quarter: 2010Q1

REPORT INFORMATION
  Report Type: 
  Country: None (occurrence: None)
  Receive Date: 20100323
  Receipt Date: 20100317
  Transmission Date: 20100710
  Serious: Yes (Death)
  Sender: FDA-Public Use
  Company Number: US-ASTRAZENECA-2010SE11894

PATIENT
  Age: 70 Year
  Sex: Female

DRUGS (2)
  1. SYMBICORT [Suspect]
     Route: 055
  2. ALBUTEROL [Concomitant]

REACTIONS (1)
  - CEREBROVASCULAR ACCIDENT [None]
